FAERS Safety Report 5986409-3 (Version None)
Quarter: 2008Q4

REPORT INFORMATION
  Report Type: 
  Country: None (occurrence: None)
  Receive Date: 20081209
  Receipt Date: 20081201
  Transmission Date: 20090506
  Serious: Yes (Hospitalization)
  Sender: FDA-Public Use
  Company Number: JP-BAYER-200812948BYL

PATIENT
  Age: 70 Year
  Sex: Male
  Weight: 52 kg

DRUGS (6)
  1. NEXAVAR [Suspect]
     Indication: RENAL CELL CARCINOMA STAGE IV
     Dosage: UNIT DOSE: 200 MG
     Route: 048
     Dates: start: 20080324, end: 20081105
  2. NEXAVAR [Suspect]
     Dosage: UNIT DOSE: 200 MG
     Route: 048
     Dates: start: 20081106, end: 20081119
  3. GASMOTIN [Concomitant]
     Dosage: AS USED: 15 MG  UNIT DOSE: 5 MG
     Route: 048
     Dates: start: 20070511
  4. PANTOSIN [Concomitant]
     Dosage: AS USED: 600 MG  UNIT DOSE: 200 MG
     Route: 048
     Dates: start: 20070511
  5. BISOLVON [Concomitant]
     Dosage: AS USED: 12 MG  UNIT DOSE: 4 MG
     Route: 048
     Dates: start: 20070824
  6. MEDICON [Concomitant]
     Dosage: AS USED: 15 MG
     Route: 048
     Dates: start: 20080612

REACTIONS (9)
  - ALOPECIA [None]
  - DIARRHOEA [None]
  - HEPATIC ENZYME INCREASED [None]
  - HYPERTENSION [None]
  - HYPOPHOSPHATAEMIA [None]
  - LIVER DISORDER [None]
  - PALMAR-PLANTAR ERYTHRODYSAESTHESIA SYNDROME [None]
  - PYREXIA [None]
  - RASH [None]
